FAERS Safety Report 4320048-5 (Version None)
Quarter: 2004Q1

REPORT INFORMATION
  Report Type: 
  Country: None (occurrence: None)
  Receive Date: 20040316
  Receipt Date: 20040303
  Transmission Date: 20041129
  Serious: Yes (Death)
  Sender: FDA-Public Use
  Company Number: USA-2003-0011528

PATIENT
  Age: 47 Year
  Sex: Male

DRUGS (10)
  1. MORPHINE SULFATE [Suspect]
  2. HYDROCODONE BITARTRATE [Suspect]
  3. DIHYDROCODEINE/CAFFEINE/ACETAMINOPHEN (DIHYDROCODEINE, CAFFEINE, PARAC [Suspect]
  4. ACETAMINOPHEN [Suspect]
  5. OLANZAPINE [Suspect]
  6. AMITRIPTYLINE HCL [Suspect]
  7. TRAZODONE HCL [Suspect]
  8. NICOTINE [Suspect]
  9. CAFFEINE (CAFFEINE) [Suspect]
  10. BUPROPION (AMFEBUTAMONE) [Suspect]

REACTIONS (11)
  - BRONCHITIS CHRONIC [None]
  - CEREBRAL INFARCTION [None]
  - CHRONIC OBSTRUCTIVE AIRWAYS DISEASE [None]
  - COMA [None]
  - DRUG SCREEN POSITIVE [None]
  - EMPHYSEMA [None]
  - PLEURAL ADHESION [None]
  - PNEUMONITIS [None]
  - PYELONEPHRITIS CHRONIC [None]
  - RENAL DISORDER [None]
  - SCAR [None]
